FAERS Safety Report 18368456 (Version 1)
Quarter: 2020Q4

REPORT INFORMATION
  Report Type: Report from Study
  Country: None (occurrence: US)
  Receive Date: 20201009
  Receipt Date: 20201009
  Transmission Date: 20210114
  Serious: Yes (Other)
  Sender: FDA-Public Use
  Company Number: US-ABBVIE-19K-163-2986493-00

PATIENT
  Age: 63 Year
  Sex: Female
  Weight: 63.56 kg

DRUGS (7)
  1. HUMIRA [Suspect]
     Active Substance: ADALIMUMAB
     Route: 058
     Dates: start: 20200423, end: 20200802
  2. OXYBUTININ ACCORD [Concomitant]
     Active Substance: OXYBUTYNIN
     Indication: PRODUCT USED FOR UNKNOWN INDICATION
  3. TERBINAFINE. [Suspect]
     Active Substance: TERBINAFINE
     Indication: ABSCESS
     Route: 065
  4. AMBIEN [Concomitant]
     Active Substance: ZOLPIDEM TARTRATE
     Indication: SLEEP DISORDER
  5. HUMIRA [Suspect]
     Active Substance: ADALIMUMAB
     Indication: PSORIASIS
     Route: 058
     Dates: start: 20180420, end: 20200326
  6. TIROSINT [Concomitant]
     Active Substance: LEVOTHYROXINE SODIUM
     Indication: HYPOTHYROIDISM
  7. HUMIRA [Suspect]
     Active Substance: ADALIMUMAB
     Route: 058
     Dates: start: 20200825

REACTIONS (19)
  - Intentional dose omission [Recovered/Resolved]
  - Blood urea nitrogen/creatinine ratio decreased [Unknown]
  - Blood chloride decreased [Unknown]
  - Rash papular [Recovered/Resolved]
  - Accident [Recovering/Resolving]
  - Blood glucose increased [Unknown]
  - Mean cell volume increased [Unknown]
  - Rash pruritic [Recovered/Resolved]
  - Mean cell haemoglobin increased [Unknown]
  - Fall [Recovered/Resolved]
  - Pain [Recovering/Resolving]
  - Blood urea decreased [Unknown]
  - Drug hypersensitivity [Recovered/Resolved]
  - Drug eruption [Recovered/Resolved]
  - Humerus fracture [Unknown]
  - Red blood cell count decreased [Unknown]
  - Abscess [Recovered/Resolved]
  - Blood sodium decreased [Unknown]
  - Tinea pedis [Recovering/Resolving]

NARRATIVE: CASE EVENT DATE: 2019
